FAERS Safety Report 5336180-3 (Version None)
Quarter: 2007Q2

REPORT INFORMATION
  Report Type: 
  Country: None (occurrence: None)
  Receive Date: 20070528
  Receipt Date: 20070514
  Transmission Date: 20071010
  Serious: Yes (Other)
  Sender: FDA-Public Use
  Company Number: GB-PFIZER INC-2007036525

PATIENT
  Age: 54 Year
  Sex: Male
  Weight: 92 kg

DRUGS (2)
  1. CHAMPIX [Suspect]
     Indication: EX-SMOKER
     Route: 048
  2. SERTRALINE [Concomitant]
     Indication: DEPRESSION
     Route: 048

REACTIONS (2)
  - BLOOD GLUCOSE INCREASED [None]
  - BLOOD PRESSURE INCREASED [None]
